FAERS Safety Report 24562261 (Version 1)
Quarter: 2024Q4

REPORT INFORMATION
  Report Type: Spontaneous
  Country: GR (occurrence: GR)
  Receive Date: 20241029
  Receipt Date: 20241029
  Transmission Date: 20250115
  Serious: Yes (Life-Threatening)
  Sender: PFIZER
  Company Number: None

PATIENT
  Sex: Female

DRUGS (3)
  1. RIMEGEPANT [Suspect]
     Active Substance: RIMEGEPANT
     Indication: Migraine
     Dosage: 75 MG, ALTERNATE DAY (REPORTED:75 MG EVERY OTHER DAY)
     Dates: start: 20240417
  2. DUPHASTON [Concomitant]
     Active Substance: DYDROGESTERONE
  3. ZOLOFT [Concomitant]
     Active Substance: SERTRALINE HYDROCHLORIDE
     Dosage: 50 MG, 1X/DAY
     Dates: start: 20221019

REACTIONS (1)
  - Immune thrombocytopenia [Recovering/Resolving]
